FAERS Safety Report 19979306 (Version 1)
Quarter: 2021Q4

REPORT INFORMATION
  Report Type: Spontaneous
  Country: RS (occurrence: RS)
  Receive Date: 20211020
  Receipt Date: 20211020
  Transmission Date: 20220303
  Serious: Yes (Hospitalization)
  Sender: FDA-Public Use
  Company Number: 2021A777765

PATIENT
  Age: 2413 Day
  Sex: Male

DRUGS (6)
  1. LYNPARZA [Suspect]
     Active Substance: OLAPARIB
     Indication: Glioblastoma
     Dosage: ONE IN THE MORNING AND ONE IN THE EVENING ON WORKING DAYS, PAUSE ON DURING WEEKEND
     Route: 048
  2. TEMOZOLOMIDE [Concomitant]
     Active Substance: TEMOZOLOMIDE
     Indication: Glioblastoma
  3. CEFIXIME [Concomitant]
     Active Substance: CEFIXIME
  4. GENTAMICIN [Concomitant]
     Active Substance: GENTAMICIN
  5. COLISTIN [Concomitant]
     Active Substance: COLISTIN
  6. MEROPENEM [Concomitant]
     Active Substance: MEROPENEM

REACTIONS (3)
  - Leukopenia [Unknown]
  - Increased bronchial secretion [Unknown]
  - Off label use [Unknown]

NARRATIVE: CASE EVENT DATE: 20211011
